FAERS Safety Report 24529593 (Version 1)
Quarter: 2024Q4

REPORT INFORMATION
  Report Type: Spontaneous
  Country: US (occurrence: US)
  Receive Date: 20241021
  Receipt Date: 20241021
  Transmission Date: 20250114
  Serious: Yes (Hospitalization, Other)
  Sender: BIOMARIN
  Company Number: US-SA-2024SA294936

PATIENT

DRUGS (1)
  1. LARONIDASE [Suspect]
     Active Substance: LARONIDASE
     Indication: Mucopolysaccharidosis I
     Dosage: 46.4 (UNITS NOT PROVIDED), QW
     Route: 042

REACTIONS (2)
  - Pulmonary oedema [Not Recovered/Not Resolved]
  - Carbon dioxide increased [Not Recovered/Not Resolved]
